FAERS Safety Report 18608385 (Version 1)
Quarter: 2020Q4

REPORT INFORMATION
  Report Type: Spontaneous
  Country: FR (occurrence: FR)
  Receive Date: 20201212
  Receipt Date: 20201212
  Transmission Date: 20210114
  Serious: Yes (Death)
  Sender: FDA-Public Use
  Company Number: FR-TEVA-2020-FR-1855823

PATIENT
  Sex: Female

DRUGS (2)
  1. CHLORHYDRATE DE TRAMADOL [Suspect]
     Active Substance: TRAMADOL HYDROCHLORIDE
     Route: 065
  2. BROMAZEPAM [Suspect]
     Active Substance: BROMAZEPAM
     Route: 065

REACTIONS (1)
  - Death [Fatal]
